FAERS Safety Report 17111720 (Version 1)
Quarter: 2019Q4

REPORT INFORMATION
  Report Type: Spontaneous
  Country: US (occurrence: US)
  Receive Date: 20191204
  Receipt Date: 20191204
  Transmission Date: 20200122
  Serious: No
  Sender: FDA-Public Use
  Company Number: US-FRESENIUS KABI-FK201913119

PATIENT

DRUGS (1)
  1. SMOFLIPID [Suspect]
     Active Substance: FISH OIL\MEDIUM-CHAIN TRIGLYCERIDES\OLIVE OIL\SOYBEAN OIL
     Indication: PRODUCT USED FOR UNKNOWN INDICATION
     Dosage: STARTING AT 1 TO 2 GM/KG/DAY AND ADVANCING 0.5 GM TO GOAL OF 3 GM/KG/DAY
     Route: 065

REACTIONS (2)
  - Product use issue [Unknown]
  - Hypertriglyceridaemia [Unknown]
